FAERS Safety Report 8367252-7 (Version None)
Quarter: 2012Q2

REPORT INFORMATION
  Report Type: 
  Country: None (occurrence: None)
  Receive Date: 20120517
  Receipt Date: 20120508
  Transmission Date: 20120825
  Serious: Yes (Hospitalization, Other)
  Sender: FDA-Public Use
  Company Number: JP-VERTEX PHARMACEUTICALS INC.-AE-2012-004794

PATIENT
  Age: 64 Year
  Sex: Male

DRUGS (13)
  1. VOGLIBOSE [Concomitant]
     Route: 048
  2. BUTIKINON [Concomitant]
     Route: 048
  3. RIBAVIRIN [Concomitant]
     Route: 048
     Dates: start: 20120502
  4. PEGINTERFERON ALFA-2B [Concomitant]
     Route: 051
  5. URDESTON [Concomitant]
     Route: 048
  6. OMEPRAZOLE [Concomitant]
     Route: 048
  7. PROMACTA [Concomitant]
     Route: 048
  8. METFORMIN HCL [Concomitant]
     Route: 048
  9. JANUVIA [Concomitant]
     Route: 048
  10. TELAVIC (TELAPREVIR) [Suspect]
     Indication: HEPATITIS C
     Route: 048
     Dates: start: 20120321
  11. RIBAVIRIN [Concomitant]
     Route: 048
     Dates: start: 20120321, end: 20120423
  12. OLMESARTAN MEDOXOMIL [Concomitant]
     Route: 048
  13. RIBAVIRIN [Concomitant]
     Route: 048
     Dates: start: 20120423, end: 20120501

REACTIONS (2)
  - DRUG ERUPTION [None]
  - LOSS OF CONSCIOUSNESS [None]
